FAERS Safety Report 8201809-9 (Version None)
Quarter: 2012Q1

REPORT INFORMATION
  Report Type: 
  Country: None (occurrence: None)
  Receive Date: 20120312
  Receipt Date: 20120305
  Transmission Date: 20120608
  Serious: Yes (Hospitalization, Other)
  Sender: FDA-Public Use
  Company Number: US-ROXANE LABORATORIES, INC.-2012-RO-00793RO

PATIENT
  Age: 43 Year
  Sex: Male

DRUGS (3)
  1. VALPROIC ACID [Suspect]
     Indication: SCHIZOAFFECTIVE DISORDER BIPOLAR TYPE
     Dosage: 1000 MG
  2. TERBINAFINE HCL [Suspect]
     Indication: NAIL INFECTION
  3. RISPERIDONE [Suspect]
     Indication: SCHIZOAFFECTIVE DISORDER BIPOLAR TYPE
     Route: 030

REACTIONS (3)
  - EXTRAPYRAMIDAL DISORDER [None]
  - APHAGIA [None]
  - PSYCHOTIC DISORDER [None]
